FAERS Safety Report 5455530-0 (Version None)
Quarter: 2007Q3

REPORT INFORMATION
  Report Type: 
  Country: None (occurrence: None)
  Receive Date: 20070913
  Receipt Date: 20070913
  Transmission Date: 20080115
  Serious: Yes (Hospitalization)
  Sender: FDA-Public Use
  Company Number: None

PATIENT
  Age: 50 Year
  Sex: Female
  Weight: 72.5755 kg

DRUGS (1)
  1. AMBIEN CR [Suspect]
     Indication: INSOMNIA
     Dosage: 1 TABLET  1  PO   (DURATION: SINGLE NIGHT)
     Route: 048
     Dates: start: 20070821, end: 20070822

REACTIONS (5)
  - AMNESIA [None]
  - CONTUSION [None]
  - FALL [None]
  - LACERATION [None]
  - LIMB INJURY [None]
